FAERS Safety Report 12747783 (Version 1)
Quarter: 2016Q3

REPORT INFORMATION
  Report Type: Spontaneous
  Country: US (occurrence: US)
  Receive Date: 20160915
  Receipt Date: 20160915
  Transmission Date: 20161109
  Serious: No
  Sender: FDA-Public Use
  Company Number: US-JAZZ-2016-US-009979

PATIENT
  Sex: Female

DRUGS (21)
  1. NORCO [Concomitant]
     Active Substance: ACETAMINOPHEN\HYDROCODONE BITARTRATE
  2. DICLOFENAC SODIUM DR [Concomitant]
     Active Substance: DICLOFENAC SODIUM
  3. LYRICA [Concomitant]
     Active Substance: PREGABALIN
  4. SKELAXIN [Concomitant]
     Active Substance: METAXALONE
  5. ZOLOFT [Concomitant]
     Active Substance: SERTRALINE HYDROCHLORIDE
  6. CYMBALTA [Concomitant]
     Active Substance: DULOXETINE HYDROCHLORIDE
  7. ALPRAZOLAM ER [Concomitant]
     Active Substance: ALPRAZOLAM
  8. LIDOCAINE HYDROCORTISONE [Concomitant]
  9. DAYPRO [Concomitant]
     Active Substance: OXAPROZIN
  10. SINGULAIR [Concomitant]
     Active Substance: MONTELUKAST SODIUM
  11. XYREM [Suspect]
     Active Substance: SODIUM OXYBATE
     Indication: FIBROMYALGIA
     Dosage: 2.25 G, BID
     Route: 048
     Dates: start: 201112, end: 2012
  12. PLEXUS [Concomitant]
  13. GABAPENTIN. [Concomitant]
     Active Substance: GABAPENTIN
  14. PROTONIX DR [Concomitant]
  15. PROVIGIL [Concomitant]
     Active Substance: MODAFINIL
  16. XYREM [Suspect]
     Active Substance: SODIUM OXYBATE
     Dosage: DOSE ADJUSTMENTS
     Route: 048
  17. XYREM [Suspect]
     Active Substance: SODIUM OXYBATE
     Dosage: 4 G, BID
     Route: 048
     Dates: start: 201403
  18. METROLOTION [Concomitant]
     Active Substance: METRONIDAZOLE
  19. NUVIGIL [Concomitant]
     Active Substance: ARMODAFINIL
  20. XYZAL [Concomitant]
     Active Substance: LEVOCETIRIZINE DIHYDROCHLORIDE
  21. ZYRTEC [Concomitant]
     Active Substance: CETIRIZINE HYDROCHLORIDE

REACTIONS (1)
  - Anxiety [Unknown]
